FAERS Safety Report 14531598 (Version 3)
Quarter: 2019Q1

REPORT INFORMATION
  Report Type: Spontaneous
  Country: ES (occurrence: ES)
  Receive Date: 20180214
  Receipt Date: 20190103
  Transmission Date: 20190417
  Serious: Yes (Other)
  Sender: FDA-Public Use
  Company Number: ES-MYLANLABS-2018M1009493

PATIENT
  Age: 92 Year
  Sex: Female

DRUGS (19)
  1. ACENOCUMAROL [Interacting]
     Active Substance: ACENOCOUMAROL
     Dosage: 0,25 MG CADA 24 HORAS CON AUMENTO POSTERIOR A 0,5 MG CADA 24 HORAS EL 26/01/2017
     Route: 048
     Dates: start: 20040917, end: 20170127
  2. LORAZEPAM. [Concomitant]
     Active Substance: LORAZEPAM
     Dosage: 1 MG QD
  3. PANTOPRAZOLE [Interacting]
     Active Substance: PANTOPRAZOLE
     Dosage: 20 MG, QD
     Dates: start: 20170126
  4. PARACETAMOL [Concomitant]
     Active Substance: ACETAMINOPHEN
     Indication: PRODUCT USED FOR UNKNOWN INDICATION
     Dosage: 1 GR CADA 8 HORAS
     Dates: start: 20170125
  5. AMOXICILLIN/CLAVULANIC ACID [Interacting]
     Active Substance: AMOXICILLIN\CLAVULANIC ACID
     Indication: PNEUMONIA
     Dosage: 1 GR CADA 8 HORAS CON CAMBIOS DE DOSIS IRREGULAR A 875 MG CADA 8 HORAS
     Route: 042
     Dates: start: 20170125, end: 20170208
  6. AMBROXOL [Concomitant]
     Active Substance: AMBROXOL
     Indication: PRODUCT USED FOR UNKNOWN INDICATION
     Dosage: 15 MG CADA 8 HORAS
     Dates: start: 20170125
  7. AMBROXOL [Concomitant]
     Active Substance: AMBROXOL
     Dosage: 15 MG, Q8H
  8. PANTOPRAZOLE [Suspect]
     Active Substance: PANTOPRAZOLE
     Indication: PRODUCT USED FOR UNKNOWN INDICATION
     Dosage: 40 MG, QD
  9. AMOXICILLIN/CLAVULANIC ACID [Interacting]
     Active Substance: AMOXICILLIN\CLAVULANIC ACID
     Dosage: 845 UNK, UNK
     Dates: start: 20170130, end: 20170208
  10. ACENOCUMAROL [Interacting]
     Active Substance: ACENOCOUMAROL
     Dosage: 0.5 MG, QD
     Route: 048
     Dates: start: 20170126, end: 20170127
  11. LORAZEPAM. [Concomitant]
     Active Substance: LORAZEPAM
     Indication: PRODUCT USED FOR UNKNOWN INDICATION
     Dosage: 1 MG CADA 24 HORAS
     Dates: start: 20170126
  12. LORAZEPAM. [Concomitant]
     Active Substance: LORAZEPAM
     Dosage: 0.5 UNK, UNK
  13. PARACETAMOL [Concomitant]
     Active Substance: ACETAMINOPHEN
     Dosage: 1 G, Q8H
  14. PANTOPRAZOLE [Interacting]
     Active Substance: PANTOPRAZOLE
     Dosage: 20 MG CADA 24 HORAS
     Dates: start: 20170126
  15. PANTOPRAZOLE [Interacting]
     Active Substance: PANTOPRAZOLE
     Dosage: 40 MG CADA 24 HORAS CON REDUCCION POSTERIOR DE LA DOSIS A 20 MG CADA 24 HORAS EL 26/01/2017
     Dates: start: 20170125
  16. LORAZEPAM. [Concomitant]
     Active Substance: LORAZEPAM
     Dosage: 1 MG CADA 24 HORAS
     Dates: start: 20170125
  17. DIGOXINA [Concomitant]
     Active Substance: DIGOXIN
     Indication: PRODUCT USED FOR UNKNOWN INDICATION
     Dosage: 0,125 CADA 24 HORAS
     Dates: start: 20170126
  18. ACENOCUMAROL [Interacting]
     Active Substance: ACENOCOUMAROL
     Indication: ATRIAL FIBRILLATION
     Dosage: 0.25 MG, QD
     Route: 048
     Dates: start: 20040917
  19. DIGOXINA [Concomitant]
     Active Substance: DIGOXIN
     Dosage: 0.125 MG, QD

REACTIONS (2)
  - Hypocoagulable state [Recovered/Resolved]
  - Drug interaction [Unknown]

NARRATIVE: CASE EVENT DATE: 20170127
